FAERS Safety Report 9083711 (Version 1)
Quarter: 2013Q1

REPORT INFORMATION
  Report Type: Spontaneous
  Country: US (occurrence: US)
  Receive Date: 20130130
  Receipt Date: 20130130
  Transmission Date: 20140127
  Serious: No
  Sender: FDA-Public Use
  Company Number: US-009507513-1301USA011760

PATIENT
  Sex: Female
  Weight: 65.22 kg

DRUGS (2)
  1. IMPLANON [Suspect]
     Indication: CONTRACEPTION
     Dosage: UNK
     Route: 059
     Dates: start: 200905
  2. YAZ [Concomitant]
     Dosage: IRREGULARLY

REACTIONS (1)
  - Medical device complication [Unknown]
